FAERS Safety Report 8525705-2 (Version None)
Quarter: 2012Q3

REPORT INFORMATION
  Report Type: 
  Country: None (occurrence: None)
  Receive Date: 20120720
  Receipt Date: 20120705
  Transmission Date: 20120928
  Serious: Yes (Hospitalization)
  Sender: FDA-Public Use
  Company Number: IT-009507513-1107ITA00016

PATIENT

DRUGS (4)
  1. ALENDRONATE SODIUM [Suspect]
     Indication: OSTEOPOROSIS
     Dosage: UNK MG, UNK
     Route: 048
     Dates: start: 20020101
  2. ACETAMINOPHEN [Suspect]
     Dosage: 500
  3. FOSAMAX [Suspect]
     Dosage: 70 MG, QW
     Dates: end: 20060101
  4. FOSAMAX [Suspect]
     Indication: OSTEOPOROSIS
     Dosage: UNK
     Dates: start: 20020101

REACTIONS (8)
  - GINGIVAL DISORDER [None]
  - EMPHYSEMA [None]
  - DENTAL FISTULA [None]
  - UTERINE PROLAPSE [None]
  - SINUSITIS [None]
  - ORAL DISORDER [None]
  - BONE LOSS [None]
  - OSTEITIS [None]
